FAERS Safety Report 14607046 (Version 1)
Quarter: 2018Q1

REPORT INFORMATION
  Report Type: Spontaneous
  Country: US (occurrence: US)
  Receive Date: 20180307
  Receipt Date: 20180307
  Transmission Date: 20180509
  Serious: Yes (Hospitalization, Disabling)
  Sender: FDA-Public Use
  Company Number: US-JNJFOC-20180303108

PATIENT
  Sex: Male

DRUGS (1)
  1. INVOKANA [Suspect]
     Active Substance: CANAGLIFLOZIN
     Indication: TYPE 2 DIABETES MELLITUS
     Route: 048
     Dates: start: 20140707

REACTIONS (6)
  - Amputation [Unknown]
  - Staphylococcal osteomyelitis [Unknown]
  - Skin ulcer [Unknown]
  - Osteomyelitis [Not Recovered/Not Resolved]
  - Bone operation [Unknown]
  - Gangrene [Unknown]

NARRATIVE: CASE EVENT DATE: 2016
